FAERS Safety Report 17073521 (Version 1)
Quarter: 2019Q4

REPORT INFORMATION
  Report Type: Spontaneous
  Country: IT (occurrence: IT)
  Receive Date: 20191126
  Receipt Date: 20191126
  Transmission Date: 20200122
  Serious: Yes (Hospitalization)
  Sender: FDA-Public Use
  Company Number: IT-SUN PHARMACEUTICAL INDUSTRIES LTD-2019RR-228872

PATIENT
  Age: 31 Year
  Sex: Male

DRUGS (6)
  1. CANRENONE [Suspect]
     Active Substance: CANRENONE
     Indication: INTENTIONAL SELF-INJURY
     Dosage: 1500 MILLIGRAM, IN TOTAL
     Route: 048
     Dates: start: 20190923, end: 20190923
  2. FUROSEMIDE. [Suspect]
     Active Substance: FUROSEMIDE
     Indication: INTENTIONAL SELF-INJURY
     Dosage: 150 MILLIGRAM, IN TOTAL
     Route: 048
     Dates: start: 20190923, end: 20190923
  3. COUMADIN [Suspect]
     Active Substance: WARFARIN SODIUM
     Indication: INTENTIONAL SELF-INJURY
     Dosage: 15 MILLIGRAM, IN TOTAL
     Route: 048
     Dates: start: 20190923, end: 20190923
  4. LORAZEPAM. [Suspect]
     Active Substance: LORAZEPAM
     Indication: INTENTIONAL SELF-INJURY
     Dosage: 10 MILLIGRAM, IN TOTAL
     Route: 048
     Dates: start: 20190923, end: 20190923
  5. CLONAZEPAM. [Suspect]
     Active Substance: CLONAZEPAM
     Indication: INTENTIONAL SELF-INJURY
     Dosage: 6 MILLIGRAM, IN TOTAL
     Route: 048
     Dates: start: 20190923, end: 20190923
  6. CARBAMAZEPIN [Suspect]
     Active Substance: CARBAMAZEPINE
     Indication: INTENTIONAL SELF-INJURY
     Dosage: 800 MILLIGRAM, IN TOTAL
     Route: 065
     Dates: start: 20190923, end: 20190923

REACTIONS (4)
  - Intentional self-injury [Recovering/Resolving]
  - Renal failure [Recovering/Resolving]
  - Sopor [Recovering/Resolving]
  - Drug abuse [Recovering/Resolving]

NARRATIVE: CASE EVENT DATE: 20190923
